FAERS Safety Report 7232817-2 (Version None)
Quarter: 2011Q1

REPORT INFORMATION
  Report Type: 
  Country: None (occurrence: None)
  Receive Date: 20110106
  Receipt Date: 20101231
  Transmission Date: 20110831
  Serious: Yes (Other)
  Sender: FDA-Public Use
  Company Number: GER/UKI/11/0017047

PATIENT
  Age: 59 Year
  Sex: Male
  Weight: 80 kg

DRUGS (5)
  1. AMLODIPINE [Suspect]
     Indication: PRODUCT USED FOR UNKNOWN INDICATION
     Dates: start: 20100101
  2. AMLODIPINE [Suspect]
     Indication: PRODUCT USED FOR UNKNOWN INDICATION
     Dates: start: 20100831, end: 20101026
  3. RAMIPRIL [Concomitant]
  4. SIMVASTATIN [Concomitant]
  5. TAMSULOSIN HCL [Concomitant]

REACTIONS (2)
  - ABDOMINAL DISTENSION [None]
  - DIARRHOEA [None]
